FAERS Safety Report 18413944 (Version 9)
Quarter: 2022Q2

REPORT INFORMATION
  Report Type: Report from Study
  Country: BR (occurrence: BR)
  Receive Date: 20201022
  Receipt Date: 20220425
  Transmission Date: 20220721
  Serious: Yes (Life-Threatening, Disabling, Other)
  Sender: FDA-Public Use
  Company Number: NVSC2020BR274692

PATIENT
  Age: 53 Year
  Sex: Female
  Weight: 88 kg

DRUGS (18)
  1. COSENTYX [Suspect]
     Active Substance: SECUKINUMAB
     Indication: Ankylosing spondylitis
     Dosage: 150 MG, QMO
     Route: 058
     Dates: start: 20200905
  2. COSENTYX [Suspect]
     Active Substance: SECUKINUMAB
     Indication: Arthritis
     Dosage: UNK UNK, QMO
     Route: 065
     Dates: start: 20201002
  3. COSENTYX [Suspect]
     Active Substance: SECUKINUMAB
     Indication: Spondylitis
     Dosage: UNK
     Route: 065
     Dates: start: 20201013
  4. COSENTYX [Suspect]
     Active Substance: SECUKINUMAB
     Dosage: UNK
     Route: 065
     Dates: start: 20201213
  5. COSENTYX [Suspect]
     Active Substance: SECUKINUMAB
     Dosage: 150 MG, QMO
     Route: 065
     Dates: start: 20210905
  6. COSENTYX [Suspect]
     Active Substance: SECUKINUMAB
     Dosage: UNK
     Route: 065
     Dates: start: 20211110
  7. PREGABALIN [Suspect]
     Active Substance: PREGABALIN
     Indication: Product used for unknown indication
     Dosage: UNK
     Route: 065
     Dates: start: 20201014
  8. NAPROXEN [Suspect]
     Active Substance: NAPROXEN
     Indication: Pain
     Dosage: UNK
     Route: 065
  9. PURAN [Concomitant]
     Active Substance: LEVOTHYROXINE SODIUM
     Indication: Autoimmune thyroiditis
     Dosage: 1 DF, QD
     Route: 048
     Dates: start: 2010
  10. ISOSORBIDE [Concomitant]
     Active Substance: ISOSORBIDE
     Indication: Hypertension
     Dosage: 2 DF, TID
     Route: 048
     Dates: start: 2019
  11. DILTIAZEM [Concomitant]
     Active Substance: DILTIAZEM
     Indication: Hypertension
     Dosage: 6 DF, QD
     Route: 048
     Dates: start: 2019
  12. CLONIDINE [Concomitant]
     Active Substance: CLONIDINE
     Indication: Hypertension
     Dosage: 1 DF, TID
     Route: 048
     Dates: start: 2010
  13. OLMESARTAN [Concomitant]
     Active Substance: OLMESARTAN
     Indication: Hypertension
     Dosage: 1 DF, QD
     Route: 048
     Dates: start: 2019
  14. SULFASALAZINE [Concomitant]
     Active Substance: SULFASALAZINE
     Indication: Hypertension
     Dosage: 1 DF, QD (STARTED IN JULY 2020 OR AUG 2020)
     Route: 048
  15. SULFASALAZINE [Concomitant]
     Active Substance: SULFASALAZINE
     Dosage: 4 DF, QD
     Route: 065
  16. NORFLOXACIN [Concomitant]
     Active Substance: NORFLOXACIN
     Indication: Urinary tract infection
     Dosage: 1 DF, Q12H (STOPPED AFTER 5 DAYS)
     Route: 048
     Dates: start: 202009
  17. PAROXETINE [Concomitant]
     Active Substance: PAROXETINE
     Indication: Insomnia
     Dosage: UNK
     Route: 065
  18. CLONAZEPAM [Concomitant]
     Active Substance: CLONAZEPAM
     Indication: Insomnia
     Route: 065

REACTIONS (38)
  - Infarction [Unknown]
  - Gait inability [Recovering/Resolving]
  - Erythema [Recovering/Resolving]
  - Drug ineffective [Recovering/Resolving]
  - Joint swelling [Not Recovered/Not Resolved]
  - Rheumatoid arthritis [Not Recovered/Not Resolved]
  - Arthralgia [Recovering/Resolving]
  - Spondylitis [Recovering/Resolving]
  - Muscular weakness [Not Recovered/Not Resolved]
  - Cardiac disorder [Unknown]
  - Constipation [Recovering/Resolving]
  - Tendonitis [Recovering/Resolving]
  - Inflammation [Recovering/Resolving]
  - Headache [Recovering/Resolving]
  - Temperature intolerance [Unknown]
  - Renal disorder [Unknown]
  - Pain [Recovering/Resolving]
  - Burning sensation [Recovering/Resolving]
  - Eye pruritus [Unknown]
  - Dysstasia [Not Recovered/Not Resolved]
  - Spinal pain [Recovered/Resolved]
  - Coccydynia [Recovered/Resolved]
  - Back pain [Recovered/Resolved]
  - Insomnia [Unknown]
  - Cardiomegaly [Unknown]
  - Hypertension [Unknown]
  - Joint effusion [Unknown]
  - Tendon rupture [Unknown]
  - Peripheral swelling [Unknown]
  - Joint warmth [Recovered/Resolved]
  - Arthritis [Not Recovered/Not Resolved]
  - Joint stiffness [Not Recovered/Not Resolved]
  - Fatigue [Unknown]
  - Sensitivity to weather change [Unknown]
  - Product use in unapproved indication [Unknown]
  - Injection site swelling [Recovering/Resolving]
  - Therapeutic product effect delayed [Unknown]
  - Product availability issue [Unknown]

NARRATIVE: CASE EVENT DATE: 20200905
